FAERS Safety Report 13099837 (Version 1)
Quarter: 2017Q1

REPORT INFORMATION
  Report Type: Spontaneous
  Country: US (occurrence: US)
  Receive Date: 20170110
  Receipt Date: 20170110
  Transmission Date: 20170428
  Serious: No
  Sender: FDA-Public Use
  Company Number: US-TEVA-723145ACC

PATIENT
  Sex: Female

DRUGS (1)
  1. PLAN B ONE-STEP [Suspect]
     Active Substance: LEVONORGESTREL
     Indication: POST COITAL CONTRACEPTION
     Dates: start: 20161205, end: 20161205

REACTIONS (4)
  - Dysuria [Not Recovered/Not Resolved]
  - Menstruation delayed [Recovered/Resolved]
  - Blood urine present [Not Recovered/Not Resolved]
  - Pollakiuria [Not Recovered/Not Resolved]
